FAERS Safety Report 13592233 (Version 1)
Quarter: 2017Q2

REPORT INFORMATION
  Report Type: Report from Study
  Country: None (occurrence: US)
  Receive Date: 20170529
  Receipt Date: 20170529
  Transmission Date: 20170830
  Serious: Yes (Hospitalization, Other)
  Sender: FDA-Public Use
  Company Number: US-ABBVIE-17K-163-1929652-00

PATIENT
  Age: 42 Year
  Sex: Female
  Weight: 99.88 kg

DRUGS (4)
  1. METOPROLOL. [Concomitant]
     Active Substance: METOPROLOL
     Indication: ATRIAL FIBRILLATION
  2. HUMIRA [Suspect]
     Active Substance: ADALIMUMAB
     Indication: RHEUMATOID ARTHRITIS
     Route: 058
     Dates: start: 201605, end: 201607
  3. PRENATAL VITAMINS [Concomitant]
     Active Substance: VITAMINS
     Indication: VITAMIN SUPPLEMENTATION
  4. HUMIRA [Suspect]
     Active Substance: ADALIMUMAB
     Route: 058
     Dates: start: 201607, end: 20170211

REACTIONS (9)
  - Pneumonia influenzal [Recovering/Resolving]
  - Alopecia [Recovered/Resolved]
  - Feeling abnormal [Recovering/Resolving]
  - Mobility decreased [Recovering/Resolving]
  - Sepsis [Recovered/Resolved]
  - Immunodeficiency [Recovering/Resolving]
  - Syncope [Recovering/Resolving]
  - Atrial fibrillation [Recovered/Resolved]
  - Rib fracture [Recovering/Resolving]

NARRATIVE: CASE EVENT DATE: 201605
